FAERS Safety Report 15795208 (Version 1)
Quarter: 2019Q1

REPORT INFORMATION
  Report Type: Spontaneous
  Country: CA (occurrence: CA)
  Receive Date: 20190107
  Receipt Date: 20190107
  Transmission Date: 20190417
  Serious: Yes (Other)
  Sender: FDA-Public Use
  Company Number: CA-GILEAD-2019-0383272

PATIENT
  Age: 49 Year
  Sex: Female

DRUGS (1)
  1. VIREAD [Suspect]
     Active Substance: TENOFOVIR DISOPROXIL FUMARATE
     Indication: HEPATITIS B
     Dosage: 300 MG, QD
     Route: 048

REACTIONS (8)
  - Chest discomfort [Unknown]
  - Nausea [Unknown]
  - Heart rate increased [Unknown]
  - Dyspnoea [Unknown]
  - Fatigue [Unknown]
  - Lactic acidosis [Unknown]
  - Dizziness [Unknown]
  - Myalgia [Unknown]
